FAERS Safety Report 10229696 (Version 2)
Quarter: 2014Q2

REPORT INFORMATION
  Report Type: Report from Study
  Country: DE (occurrence: DE)
  Receive Date: 20140611
  Receipt Date: 20140630
  Transmission Date: 20141212
  Serious: Yes (Other)
  Sender: FDA-Public Use
  Company Number: PHHY2014DE068627

PATIENT
  Sex: Male
  Weight: 62 kg

DRUGS (2)
  1. ILARIS [Suspect]
     Indication: CRYOPYRIN ASSOCIATED PERIODIC SYNDROME
     Dosage: 150 MG, EVERY 8 WEEKS
     Route: 058
     Dates: start: 20120120
  2. MYCOPHENOLATE MOFETIL [Concomitant]
     Indication: RENAL TRANSPLANT
     Dosage: 1000 MG, DAILY
     Route: 048
     Dates: start: 20110714

REACTIONS (3)
  - Jaw fracture [Recovered/Resolved]
  - Sensory loss [Recovered/Resolved]
  - Accident [Recovered/Resolved]
